FAERS Safety Report 19218620 (Version 1)
Quarter: 2021Q2

REPORT INFORMATION
  Report Type: Spontaneous
  Country: IN (occurrence: IN)
  Receive Date: 20210505
  Receipt Date: 20210505
  Transmission Date: 20210717
  Serious: Yes (Hospitalization)
  Sender: FDA-Public Use
  Company Number: IN-AVION PHARMACEUTICALS, LLC-2110234

PATIENT
  Age: 30 Year
  Sex: Female

DRUGS (2)
  1. PONSTEL [Suspect]
     Active Substance: MEFENAMIC ACID
     Indication: DYSMENORRHOEA
     Route: 065
     Dates: start: 2007
  2. DICYCLOMINE [Suspect]
     Active Substance: DICYCLOMINE HYDROCHLORIDE
     Route: 065
     Dates: start: 2007

REACTIONS (10)
  - Product use in unapproved indication [Recovered/Resolved]
  - Withdrawal syndrome [Unknown]
  - Hyperhidrosis [Unknown]
  - Drug abuse [Unknown]
  - Tachycardia [Unknown]
  - Headache [Unknown]
  - Sleep disorder [Unknown]
  - Anxiety [Unknown]
  - Depressed mood [Unknown]
  - Palpitations [Unknown]

NARRATIVE: CASE EVENT DATE: 2014
